APPROVED DRUG PRODUCT: LIDOCAINE AND PRILOCAINE
Active Ingredient: LIDOCAINE; PRILOCAINE
Strength: 2.5%;2.5%
Dosage Form/Route: CREAM;TOPICAL
Application: A076290 | Product #001
Applicant: HIKMA PHARMACEUTICALS USA INC
Approved: Sep 25, 2003 | RLD: No | RS: No | Type: DISCN